FAERS Safety Report 14982290 (Version 1)
Quarter: 2018Q2

REPORT INFORMATION
  Report Type: Spontaneous
  Country: BR (occurrence: BR)
  Receive Date: 20180607
  Receipt Date: 20180607
  Transmission Date: 20180711
  Serious: Yes (Other)
  Sender: FDA-Public Use
  Company Number: BR-009507513-1806BRA001468

PATIENT
  Sex: Female
  Weight: 90 kg

DRUGS (1)
  1. NUVARING [Suspect]
     Active Substance: ETHINYL ESTRADIOL\ETONOGESTREL
     Indication: HORMONE THERAPY
     Dosage: 1DF, CONTINUOUS USE, WITHOUT PAUSE
     Route: 067
     Dates: start: 2014

REACTIONS (5)
  - Drug dose omission [Unknown]
  - Incorrect drug administration duration [Unknown]
  - Diabetes mellitus [Unknown]
  - Depression [Unknown]
  - Product use in unapproved indication [Unknown]

NARRATIVE: CASE EVENT DATE: 2014
